FAERS Safety Report 24534491 (Version 6)
Quarter: 2025Q4

REPORT INFORMATION
  Report Type: Report from Study
  Country: JP (occurrence: JP)
  Receive Date: 20241022
  Receipt Date: 20251125
  Transmission Date: 20260117
  Serious: Yes (Death)
  Sender: SHIONOGI
  Company Number: JP-shionogi-202400001481

PATIENT
  Age: 79 Year
  Sex: Male
  Weight: 58.8 kg

DRUGS (28)
  1. CEFIDEROCOL [Suspect]
     Active Substance: CEFIDEROCOL
     Indication: Candida pneumonia
     Route: 041
     Dates: start: 20240914, end: 20240922
  2. CEFIDEROCOL [Suspect]
     Active Substance: CEFIDEROCOL
     Indication: Stenotrophomonas maltophilia pneumonia
  3. MEROPENEM [Concomitant]
     Active Substance: MEROPENEM
     Indication: Candida pneumonia
     Dosage: SINCE MORE THAN 2 WEEKS BEFORE THE START OF FETROJA
     Route: 065
     Dates: end: 20240909
  4. MEROPENEM [Concomitant]
     Active Substance: MEROPENEM
     Indication: Stenotrophomonas maltophilia pneumonia
  5. TEICOPLANIN [Concomitant]
     Active Substance: TEICOPLANIN
     Indication: Candida pneumonia
     Route: 065
     Dates: start: 20240904, end: 20240907
  6. TEICOPLANIN [Concomitant]
     Active Substance: TEICOPLANIN
     Indication: Stenotrophomonas maltophilia pneumonia
     Route: 065
     Dates: start: 20240908, end: 20240908
  7. TEICOPLANIN [Concomitant]
     Active Substance: TEICOPLANIN
     Route: 065
     Dates: start: 20240909, end: 20240911
  8. TEICOPLANIN [Concomitant]
     Active Substance: TEICOPLANIN
     Route: 065
     Dates: start: 20240912, end: 20240917
  9. TEICOPLANIN [Concomitant]
     Active Substance: TEICOPLANIN
     Route: 065
     Dates: start: 20240919, end: 20240919
  10. TEICOPLANIN [Concomitant]
     Active Substance: TEICOPLANIN
     Route: 065
     Dates: start: 20240920, end: 20240922
  11. LEVOFLOXACIN HEMIHYDRATE [Concomitant]
     Active Substance: LEVOFLOXACIN
     Indication: Candida pneumonia
     Route: 048
     Dates: start: 20240904, end: 20240920
  12. LEVOFLOXACIN HEMIHYDRATE [Concomitant]
     Active Substance: LEVOFLOXACIN
     Indication: Stenotrophomonas maltophilia pneumonia
  13. MICAFUNGIN SODIUM [Concomitant]
     Active Substance: MICAFUNGIN SODIUM
     Indication: Candida pneumonia
     Route: 065
     Dates: start: 20240904, end: 20240918
  14. MICAFUNGIN SODIUM [Concomitant]
     Active Substance: MICAFUNGIN SODIUM
     Indication: Stenotrophomonas maltophilia pneumonia
     Route: 065
     Dates: start: 20240828, end: 20240830
  15. MICAFUNGIN SODIUM [Concomitant]
     Active Substance: MICAFUNGIN SODIUM
     Route: 065
     Dates: start: 20240920, end: 20240922
  16. LIMAPROST [Concomitant]
     Active Substance: LIMAPROST
     Indication: Product used for unknown indication
     Dosage: SINCE BEFORE THE START OF FETROJA
     Route: 048
     Dates: end: 20240920
  17. JADENU [Concomitant]
     Active Substance: DEFERASIROX
     Indication: Product used for unknown indication
     Dosage: SINCE BEFORE THE START OF FETROJA
     Route: 048
     Dates: end: 20240920
  18. AZILSARTAN KAMEDOXOMIL [Concomitant]
     Active Substance: AZILSARTAN KAMEDOXOMIL
     Indication: Product used for unknown indication
     Dosage: SINCE BEFORE THE START OF FETROJA
     Route: 048
     Dates: end: 20240918
  19. CALONAL [Concomitant]
     Active Substance: ACETAMINOPHEN
     Indication: Candida pneumonia
     Route: 048
     Dates: start: 20240914, end: 20240916
  20. CALONAL [Concomitant]
     Active Substance: ACETAMINOPHEN
     Indication: Stenotrophomonas maltophilia pneumonia
  21. VERAPAMIL HYDROCHLORIDE [Concomitant]
     Active Substance: VERAPAMIL HYDROCHLORIDE
     Indication: Product used for unknown indication
     Dosage: SINCE BEFORE THE START OF FETROJA
     Route: 048
     Dates: end: 20240921
  22. BISOPROLOL FUMARATE [Concomitant]
     Active Substance: BISOPROLOL FUMARATE
     Indication: Product used for unknown indication
     Dosage: SINCE BEFORE THE START OF FETROJA
     Route: 048
     Dates: end: 20240920
  23. LAGEVRIO [Concomitant]
     Active Substance: MOLNUPIRAVIR
     Indication: Product used for unknown indication
     Route: 048
     Dates: start: 20240919, end: 20240921
  24. VEKLURY [Concomitant]
     Active Substance: REMDESIVIR
     Indication: Product used for unknown indication
     Dosage: SINCE BEFORE THE START OF FETROJA
     Route: 065
     Dates: end: 20240918
  25. ZERBAXA [Concomitant]
     Active Substance: CEFTOLOZANE SULFATE\TAZOBACTAM SODIUM
     Indication: Candida pneumonia
     Dosage: 2 VIALS X 3 TIMES/DAY
     Route: 065
     Dates: start: 20240909, end: 20240914
  26. ZERBAXA [Concomitant]
     Active Substance: CEFTOLOZANE SULFATE\TAZOBACTAM SODIUM
     Indication: Stenotrophomonas maltophilia pneumonia
  27. METRONIDAZOLE [Concomitant]
     Active Substance: METRONIDAZOLE
     Indication: Candida pneumonia
     Route: 065
     Dates: start: 20240919, end: 20240922
  28. METRONIDAZOLE [Concomitant]
     Active Substance: METRONIDAZOLE
     Indication: Stenotrophomonas maltophilia pneumonia

REACTIONS (1)
  - Pneumonia [Fatal]

NARRATIVE: CASE EVENT DATE: 20250919
